FAERS Safety Report 17452691 (Version 1)
Quarter: 2020Q1

REPORT INFORMATION
  Report Type: Spontaneous
  Country: FR (occurrence: FR)
  Receive Date: 20200224
  Receipt Date: 20200224
  Transmission Date: 20200409
  Serious: Yes (Other)
  Sender: FDA-Public Use
  Company Number: FR-OTSUKA-2019_025715

PATIENT
  Age: 44 Year
  Sex: Female

DRUGS (7)
  1. ZYPREXA [Concomitant]
     Active Substance: OLANZAPINE
     Indication: PRODUCT USED FOR UNKNOWN INDICATION
     Dosage: UNK
     Route: 065
  2. ABILIFY [Suspect]
     Active Substance: ARIPIPRAZOLE
     Indication: TOURETTE^S DISORDER
     Dosage: 15 MG, QD
     Route: 048
     Dates: start: 2009
  3. ABILIFY [Suspect]
     Active Substance: ARIPIPRAZOLE
     Dosage: 1-2 MG/D
     Route: 048
     Dates: end: 201910
  4. RISPERDAL [Concomitant]
     Active Substance: RISPERIDONE
     Indication: PRODUCT USED FOR UNKNOWN INDICATION
     Dosage: UNK
     Route: 065
  5. HALDOL [Concomitant]
     Active Substance: HALOPERIDOL
     Indication: PRODUCT USED FOR UNKNOWN INDICATION
     Dosage: UNK
     Route: 065
  6. ABILIFY [Suspect]
     Active Substance: ARIPIPRAZOLE
     Dosage: 5-6 MG/D
     Route: 048
  7. ABILIFY [Suspect]
     Active Substance: ARIPIPRAZOLE
     Dosage: 3-4 MG/D
     Route: 048

REACTIONS (19)
  - Anaemia [Not Recovered/Not Resolved]
  - Off label use [Unknown]
  - Personal relationship issue [Unknown]
  - Therapy cessation [Unknown]
  - Drug intolerance [Unknown]
  - Wrong technique in product usage process [Unknown]
  - Aggression [Unknown]
  - Disturbance in attention [Unknown]
  - Divorced [Unknown]
  - Nervousness [Not Recovered/Not Resolved]
  - Memory impairment [Unknown]
  - Abortion induced [Unknown]
  - Fatigue [Recovered/Resolved]
  - Menstrual disorder [Unknown]
  - Insomnia [Unknown]
  - Affective disorder [Unknown]
  - Hallucination, auditory [Recovered/Resolved]
  - Irritability [Unknown]
  - Hyperhidrosis [Recovered/Resolved]

NARRATIVE: CASE EVENT DATE: 2009
